FAERS Safety Report 7375582-0 (Version None)
Quarter: 2011Q1

REPORT INFORMATION
  Report Type: 
  Country: None (occurrence: None)
  Receive Date: 20110325
  Receipt Date: 20110322
  Transmission Date: 20110831
  Serious: Yes (Other)
  Sender: FDA-Public Use
  Company Number: A0919408A

PATIENT
  Age: 53 Year
  Sex: Female

DRUGS (15)
  1. LISINOPRIL [Suspect]
  2. PREDNISONE [Suspect]
  3. NICORETTE (MINT) [Suspect]
     Indication: SMOKING CESSATION THERAPY
     Dosage: 4MG SINGLE DOSE
  4. SYMBICORT [Suspect]
  5. NICODERM CQ [Suspect]
     Indication: SMOKING CESSATION THERAPY
  6. ZOFRAN [Suspect]
     Route: 065
  7. LEVOXYL [Suspect]
  8. GLYBURIDE [Suspect]
  9. PLAVIX [Suspect]
  10. LITHIUM [Suspect]
  11. UNKNOWN [Suspect]
  12. ATIVAN [Suspect]
  13. ACIPHEX [Suspect]
  14. FLEXERIL [Suspect]
  15. PROZAC [Suspect]

REACTIONS (5)
  - HALLUCINATION [None]
  - NIGHTMARE [None]
  - DRUG INTERACTION [None]
  - DYSPEPSIA [None]
  - DRUG ADMINISTRATION ERROR [None]
